FAERS Safety Report 9474248 (Version 4)
Quarter: 2014Q2

REPORT INFORMATION
  Report Type: Report from Study
  Country: US (occurrence: US)
  Receive Date: 20130823
  Receipt Date: 20140601
  Transmission Date: 20141212
  Serious: Yes (Hospitalization)
  Sender: FDA-Public Use
  Company Number: US-BRISTOL-MYERS SQUIBB COMPANY-19201631

PATIENT
  Age: 60 Year
  Sex: Female

DRUGS (9)
  1. NIVOLUMAB [Suspect]
     Indication: MALIGNANT MELANOMA
     Dosage: TOTAL DOSE 52 MG
     Route: 042
     Dates: start: 20130607
  2. IPILIMUMAB [Suspect]
     Indication: MALIGNANT MELANOMA
     Dosage: TOTAL DOSE 157 NO UNITS
     Route: 042
     Dates: start: 20130607
  3. OXYCODONE [Concomitant]
     Indication: PAIN
     Route: 048
     Dates: start: 20130501
  4. CALCIUM CARBONATE [Concomitant]
     Indication: MINERAL SUPPLEMENTATION
     Route: 048
  5. VITAMIN D [Concomitant]
     Indication: VITAMIN SUPPLEMENTATION
     Dosage: 1 DF=2000 NO UNITS
     Route: 048
  6. MULTIVITAMIN [Concomitant]
     Indication: VITAMIN SUPPLEMENTATION
     Dosage: 1 DF=1 TAB
     Route: 048
  7. TOPIRAMATE [Concomitant]
     Route: 048
  8. MOTRIN [Concomitant]
     Indication: PAIN
     Route: 048
     Dates: start: 20130607
  9. PREDNISONE [Concomitant]
     Indication: LIVER FUNCTION TEST ABNORMAL
     Route: 048
     Dates: start: 20130803

REACTIONS (4)
  - Aspartate aminotransferase increased [Recovered/Resolved]
  - Alanine aminotransferase increased [Recovered/Resolved]
  - Blood alkaline phosphatase increased [Recovered/Resolved]
  - Hyperbilirubinaemia [Recovered/Resolved]
